FAERS Safety Report 8267692-0 (Version None)
Quarter: 2012Q2

REPORT INFORMATION
  Report Type: 
  Country: None (occurrence: None)
  Receive Date: 20120409
  Receipt Date: 20120326
  Transmission Date: 20120825
  Serious: Yes (Other)
  Sender: FDA-Public Use
  Company Number: JP-SANOFI-AVENTIS-2012SA014908

PATIENT
  Age: 61 Year
  Sex: Male

DRUGS (2)
  1. LANTUS [Suspect]
     Indication: BLOOD GLUCOSE ABNORMAL
     Route: 065
     Dates: start: 20120130, end: 20120207
  2. SOLOSTAR [Suspect]
     Indication: DEVICE THERAPY
     Dates: start: 20120130, end: 20120207

REACTIONS (5)
  - ALANINE AMINOTRANSFERASE INCREASED [None]
  - SKIN DISORDER [None]
  - TOXIC SKIN ERUPTION [None]
  - LIVER DISORDER [None]
  - ASPARTATE AMINOTRANSFERASE INCREASED [None]
